FAERS Safety Report 22235184 (Version 4)
Quarter: 2023Q4

REPORT INFORMATION
  Report Type: Spontaneous
  Country: IT (occurrence: IT)
  Receive Date: 20230420
  Receipt Date: 20231018
  Transmission Date: 20240109
  Serious: Yes (Other)
  Sender: FDA-Public Use
  Company Number: IT-MINISAL02-909587

PATIENT
  Age: 32 Year
  Sex: Female

DRUGS (5)
  1. GABAPENTIN [Suspect]
     Active Substance: GABAPENTIN
     Indication: Product used for unknown indication
     Dosage: 10 DOSAGE FORM, UNK
     Route: 065
     Dates: start: 20220826, end: 20220826
  2. FOLIC ACID [Suspect]
     Active Substance: FOLIC ACID
     Indication: Personality disorder
     Dosage: UNK
     Route: 048
     Dates: start: 20220826, end: 20220826
  3. FLUOXETINE HYDROCHLORIDE [Suspect]
     Active Substance: FLUOXETINE HYDROCHLORIDE
     Indication: Affective disorder
     Dosage: FREQUENZA SOMMINISTRAZIONE: TOTALE VIA SOMMINISTRAZIONE: ORALE
     Route: 065
     Dates: start: 20220826, end: 20220826
  4. FLUOXETINE HYDROCHLORIDE [Suspect]
     Active Substance: FLUOXETINE HYDROCHLORIDE
     Indication: Affective disorder
  5. AKINETON [Suspect]
     Active Substance: BIPERIDEN HYDROCHLORIDE
     Indication: Product used for unknown indication
     Dosage: 10 DOSAGE FORM, UNK
     Route: 065
     Dates: start: 20220826, end: 20220826

REACTIONS (2)
  - Drug abuse [Recovering/Resolving]
  - Somnolence [Recovering/Resolving]

NARRATIVE: CASE EVENT DATE: 20220826
